FAERS Safety Report 16689882 (Version 1)
Quarter: 2019Q3

REPORT INFORMATION
  Report Type: Spontaneous
  Country: US (occurrence: US)
  Receive Date: 20190809
  Receipt Date: 20190809
  Transmission Date: 20191004
  Serious: No
  Sender: FDA-Public Use
  Company Number: US-009507513-1907USA014506

PATIENT
  Sex: Female

DRUGS (10)
  1. SYNTHROID [Concomitant]
     Active Substance: LEVOTHYROXINE SODIUM
  2. FOLLISTIM [Suspect]
     Active Substance: FOLLITROPIN
     Dosage: 225 (UNITS NOT PROVIDED), QD
     Route: 058
     Dates: start: 20190718
  3. GANIRELIX ACETATE. [Concomitant]
     Active Substance: GANIRELIX ACETATE
  4. MENOPUR [Concomitant]
     Active Substance: FOLLITROPIN\LUTEINIZING HORMONE
  5. CETROTIDE [Concomitant]
     Active Substance: CETRORELIX ACETATE
  6. IRON (UNSPECIFIED) (+) MINERALS (UNSPECIFIED) (+) VITAMINS (UNSPECIFIE [Concomitant]
     Active Substance: IRON\MINERALS\VITAMINS
  7. ENDOMETRIN [Concomitant]
     Active Substance: PROGESTERONE
  8. NOVAREL [Concomitant]
     Active Substance: CHORIOGONADOTROPIN ALFA
  9. FLUCONAZOLE. [Concomitant]
     Active Substance: FLUCONAZOLE
  10. LEUPROLIDE [Concomitant]
     Active Substance: LEUPROLIDE

REACTIONS (1)
  - Muscle spasms [Unknown]
